FAERS Safety Report 23096630 (Version 2)
Quarter: 2023Q4

REPORT INFORMATION
  Report Type: Report from Study
  Country: ES (occurrence: ES)
  Receive Date: 20231023
  Receipt Date: 20231120
  Transmission Date: 20240110
  Serious: Yes (Hospitalization)
  Sender: FDA-Public Use
  Company Number: ES-Eisai Europe Ltd-EC-2023-147829

PATIENT
  Age: 62 Year
  Sex: Male
  Weight: 81 kg

DRUGS (2)
  1. LENVATINIB [Suspect]
     Active Substance: LENVATINIB
     Indication: Hepatocellular carcinoma
     Route: 048
     Dates: start: 20220926, end: 20221028
  2. LENVATINIB [Suspect]
     Active Substance: LENVATINIB
     Route: 048
     Dates: start: 20221029

REACTIONS (3)
  - Hepatic encephalopathy [Recovered/Resolved]
  - Ascites [Recovered/Resolved]
  - Oedema due to hepatic disease [Recovered/Resolved]

NARRATIVE: CASE EVENT DATE: 20230420
